FAERS Safety Report 14568481 (Version 2)
Quarter: 2018Q1

REPORT INFORMATION
  Report Type: Spontaneous
  Country: FR (occurrence: FR)
  Receive Date: 20180223
  Receipt Date: 20180320
  Transmission Date: 20180509
  Serious: Yes (Life-Threatening, Hospitalization)
  Sender: FDA-Public Use
  Company Number: FR-EISAI MEDICAL RESEARCH-EC-2018-036480

PATIENT
  Age: 58 Year
  Sex: Female
  Weight: 40 kg

DRUGS (1)
  1. LENVIMA [Suspect]
     Active Substance: LENVATINIB
     Indication: THYROID CANCER
     Route: 048
     Dates: start: 20170801, end: 20171114

REACTIONS (6)
  - Pleural effusion [Recovering/Resolving]
  - Oedema peripheral [Recovering/Resolving]
  - Pulmonary embolism [Recovering/Resolving]
  - Pericardial effusion [Recovering/Resolving]
  - Nephrotic syndrome [Recovering/Resolving]
  - Generalised oedema [Recovering/Resolving]

NARRATIVE: CASE EVENT DATE: 20171113
